FAERS Safety Report 20432492 (Version 1)
Quarter: 2022Q1

REPORT INFORMATION
  Report Type: Spontaneous
  Country: NL (occurrence: NL)
  Receive Date: 20220204
  Receipt Date: 20220204
  Transmission Date: 20220423
  Serious: Yes (Other)
  Sender: FDA-Public Use
  Company Number: None

PATIENT
  Sex: Male
  Weight: 160 kg

DRUGS (3)
  1. CARVEDILOL [Suspect]
     Active Substance: CARVEDILOL
     Indication: Atrial fibrillation
     Dosage: 25 MILLIGRAM DAILY; CARVEDILOL TABLET 12,5MG / BRAND NAME NOT SPECIFIED. ,THERAPY END DATE: ASKU,
     Dates: start: 20211222
  2. LANOXIN [Concomitant]
     Active Substance: DIGOXIN
     Dosage: INJECTION FLUID, 0,25 MG/ML DIGOXINE INJVLST 0,25MG/ML / LANOXIN INJVLST 0,25MG/ML AMPUL 2ML,THERAPY
  3. EDOXABAN [Concomitant]
     Active Substance: EDOXABAN
     Dosage: 60 MG , EDOXABAN TABLET 60MG / BRAND NAME NOT SPECIFIED,THERAPY START DATE :ASKU, THERAPY END DATE:

REACTIONS (1)
  - Hallucination, visual [Recovered/Resolved]
